FAERS Safety Report 19866496 (Version 11)
Quarter: 2023Q1

REPORT INFORMATION
  Report Type: Report from Study
  Country: JP (occurrence: JP)
  Receive Date: 20210922
  Receipt Date: 20230330
  Transmission Date: 20230417
  Serious: Yes (Life-Threatening, Hospitalization, Other)
  Sender: FDA-Public Use
  Company Number: JP-NOVARTISPH-NVSJ2021JP007867

PATIENT
  Age: 0 Year
  Sex: Male
  Weight: 59.9 kg

DRUGS (66)
  1. ILARIS [Suspect]
     Active Substance: CANAKINUMAB
     Indication: Still^s disease
     Dosage: 240 MG
     Route: 058
     Dates: start: 20191121
  2. ILARIS [Suspect]
     Active Substance: CANAKINUMAB
     Dosage: 240 MG
     Route: 058
     Dates: start: 20191212
  3. ILARIS [Suspect]
     Active Substance: CANAKINUMAB
     Dosage: 240 MG
     Route: 058
     Dates: start: 20200110
  4. ILARIS [Suspect]
     Active Substance: CANAKINUMAB
     Dosage: 240 MG
     Route: 058
     Dates: start: 20200207
  5. ILARIS [Suspect]
     Active Substance: CANAKINUMAB
     Dosage: 240 MG
     Route: 058
     Dates: start: 20200313
  6. ILARIS [Suspect]
     Active Substance: CANAKINUMAB
     Dosage: 240 MG
     Route: 058
     Dates: start: 20200410
  7. ILARIS [Suspect]
     Active Substance: CANAKINUMAB
     Dosage: 240 MG
     Route: 058
     Dates: start: 20200508
  8. ILARIS [Suspect]
     Active Substance: CANAKINUMAB
     Dosage: 240 MG
     Route: 058
     Dates: start: 20200608
  9. ILARIS [Suspect]
     Active Substance: CANAKINUMAB
     Dosage: 240 MG
     Route: 058
     Dates: start: 20200706
  10. ILARIS [Suspect]
     Active Substance: CANAKINUMAB
     Dosage: 240 MG
     Route: 058
     Dates: start: 20200803
  11. ILARIS [Suspect]
     Active Substance: CANAKINUMAB
     Dosage: 240 MG
     Route: 058
     Dates: start: 20200831
  12. ILARIS [Suspect]
     Active Substance: CANAKINUMAB
     Dosage: 240 MG
     Route: 058
     Dates: start: 20201002
  13. ILARIS [Suspect]
     Active Substance: CANAKINUMAB
     Dosage: 240 MG
     Route: 058
     Dates: start: 20201030
  14. ILARIS [Suspect]
     Active Substance: CANAKINUMAB
     Dosage: 240 MG
     Route: 058
     Dates: start: 20201127
  15. ILARIS [Suspect]
     Active Substance: CANAKINUMAB
     Dosage: 240 MG
     Route: 058
     Dates: start: 20201228
  16. ILARIS [Suspect]
     Active Substance: CANAKINUMAB
     Dosage: 240 MG
     Route: 058
     Dates: start: 20210129
  17. ILARIS [Suspect]
     Active Substance: CANAKINUMAB
     Dosage: 240 MG
     Route: 058
     Dates: start: 20210301
  18. ILARIS [Suspect]
     Active Substance: CANAKINUMAB
     Dosage: 240 MG
     Route: 058
     Dates: start: 20210329
  19. ILARIS [Suspect]
     Active Substance: CANAKINUMAB
     Dosage: 240 MG
     Route: 058
     Dates: start: 20210430
  20. ILARIS [Suspect]
     Active Substance: CANAKINUMAB
     Dosage: 240 MG
     Route: 058
     Dates: start: 20210528
  21. ILARIS [Suspect]
     Active Substance: CANAKINUMAB
     Dosage: 240 MG
     Route: 058
     Dates: start: 20210625
  22. ILARIS [Suspect]
     Active Substance: CANAKINUMAB
     Dosage: 240 MG
     Route: 058
     Dates: start: 20210730
  23. ILARIS [Suspect]
     Active Substance: CANAKINUMAB
     Dosage: 240 MG
     Route: 058
     Dates: start: 20210827
  24. ILARIS [Suspect]
     Active Substance: CANAKINUMAB
     Dosage: 262.5 MG
     Route: 058
     Dates: start: 20210924
  25. ILARIS [Suspect]
     Active Substance: CANAKINUMAB
     Dosage: 300 MG
     Route: 058
     Dates: start: 20211022
  26. ILARIS [Suspect]
     Active Substance: CANAKINUMAB
     Dosage: 300 MG
     Route: 058
     Dates: start: 20211119
  27. ILARIS [Suspect]
     Active Substance: CANAKINUMAB
     Dosage: 300 MG
     Route: 058
     Dates: start: 20211217
  28. ILARIS [Suspect]
     Active Substance: CANAKINUMAB
     Dosage: 300 MG
     Route: 058
     Dates: start: 20220114
  29. ILARIS [Suspect]
     Active Substance: CANAKINUMAB
     Dosage: 300 MG
     Route: 058
     Dates: start: 20220218
  30. ILARIS [Suspect]
     Active Substance: CANAKINUMAB
     Dosage: 300 MG
     Route: 058
     Dates: start: 20220415
  31. ILARIS [Suspect]
     Active Substance: CANAKINUMAB
     Dosage: 300 MG
     Route: 058
     Dates: start: 20220513
  32. ILARIS [Suspect]
     Active Substance: CANAKINUMAB
     Dosage: 300 MG
     Route: 058
     Dates: start: 20220610
  33. ILARIS [Suspect]
     Active Substance: CANAKINUMAB
     Dosage: 300 MG
     Route: 058
     Dates: start: 20220708
  34. ILARIS [Suspect]
     Active Substance: CANAKINUMAB
     Dosage: 300 MG
     Route: 058
     Dates: start: 20220812
  35. ILARIS [Suspect]
     Active Substance: CANAKINUMAB
     Dosage: 300 MG
     Route: 058
     Dates: start: 20221007
  36. NEORAL [Suspect]
     Active Substance: CYCLOSPORINE
     Indication: Still^s disease
     Dosage: 250 MG
     Route: 048
     Dates: start: 20191205
  37. NEORAL [Suspect]
     Active Substance: CYCLOSPORINE
     Dosage: 200 MG
     Route: 048
  38. NEORAL [Suspect]
     Active Substance: CYCLOSPORINE
     Dosage: 200 MG
     Route: 048
     Dates: start: 20191225, end: 20210826
  39. NEORAL [Suspect]
     Active Substance: CYCLOSPORINE
     Dosage: 250 MG
     Route: 048
     Dates: start: 20210827, end: 20210908
  40. NEORAL [Suspect]
     Active Substance: CYCLOSPORINE
     Dosage: 200 MG
     Route: 048
     Dates: start: 20211217
  41. PREDONINE [Suspect]
     Active Substance: PREDNISOLONE
     Indication: Still^s disease
     Dosage: 20 MG
     Route: 048
     Dates: start: 20200110, end: 20200705
  42. PREDONINE [Suspect]
     Active Substance: PREDNISOLONE
     Dosage: 22.5 MG
     Route: 048
  43. PREDONINE [Suspect]
     Active Substance: PREDNISOLONE
     Dosage: 10 MG
     Route: 048
     Dates: start: 20200706, end: 20210228
  44. PREDONINE [Suspect]
     Active Substance: PREDNISOLONE
     Dosage: 30 MG
     Route: 048
     Dates: start: 20210301, end: 20210908
  45. PREDONINE [Suspect]
     Active Substance: PREDNISOLONE
     Dosage: 35 MG
     Route: 048
     Dates: start: 20210927, end: 20211118
  46. PREDONINE [Suspect]
     Active Substance: PREDNISOLONE
     Dosage: 20 MG
     Route: 048
     Dates: start: 20211119
  47. DAPSONE [Suspect]
     Active Substance: DAPSONE
     Indication: Product used for unknown indication
     Dosage: 100 MG
     Route: 048
     Dates: start: 20210827, end: 20210908
  48. SULFAMETHOXAZOLE\TRIMETHOPRIM [Suspect]
     Active Substance: SULFAMETHOXAZOLE\TRIMETHOPRIM
     Indication: Product used for unknown indication
     Dosage: 160 MG
     Route: 048
     Dates: start: 20191119, end: 20191127
  49. CYCLOSPORINE [Concomitant]
     Active Substance: CYCLOSPORINE
     Indication: Still^s disease
     Dosage: 250 MG
     Route: 048
     Dates: start: 20211001, end: 20211007
  50. CYCLOSPORINE [Concomitant]
     Active Substance: CYCLOSPORINE
     Dosage: 200 MG
     Route: 048
     Dates: start: 20211008
  51. PREDNISOLONE [Concomitant]
     Active Substance: PREDNISOLONE
     Indication: Still^s disease
     Dosage: 40 MG
     Route: 048
     Dates: start: 20191203, end: 20191212
  52. PREDNISOLONE [Concomitant]
     Active Substance: PREDNISOLONE
     Indication: Still^s disease
     Dosage: 35 MG
     Route: 048
     Dates: start: 20191213
  53. PREDNISOLONE [Concomitant]
     Active Substance: PREDNISOLONE
     Indication: Disease recurrence
     Dosage: 10 MG
     Route: 048
     Dates: start: 20201002, end: 20201029
  54. PREDNISOLONE [Concomitant]
     Active Substance: PREDNISOLONE
     Dosage: 14 MG
     Route: 048
     Dates: start: 20210430, end: 20210527
  55. CYCLOSPORINE [Concomitant]
     Active Substance: CYCLOSPORINE
     Indication: Haemophagocytic lymphohistiocytosis
     Dosage: 1 MG/KG
     Route: 065
     Dates: start: 20191108, end: 20191204
  56. CYCLOSPORINE [Concomitant]
     Active Substance: CYCLOSPORINE
     Indication: Still^s disease
     Dosage: 1 MG/KG
     Route: 065
     Dates: start: 20210909, end: 20210920
  57. DEXAMETHASONE [Concomitant]
     Active Substance: DEXAMETHASONE
     Indication: Haemophagocytic lymphohistiocytosis
     Dosage: 10 MG
     Route: 065
     Dates: start: 20191108, end: 20191203
  58. DEXAMETHASONE [Concomitant]
     Active Substance: DEXAMETHASONE
     Indication: Still^s disease
     Dosage: 10 MG
     Route: 065
     Dates: start: 20210909, end: 20210915
  59. DEXAMETHASONE [Concomitant]
     Active Substance: DEXAMETHASONE
     Dosage: 7.5 MG
     Route: 065
     Dates: start: 20210916, end: 20210922
  60. DEXAMETHASONE [Concomitant]
     Active Substance: DEXAMETHASONE
     Dosage: 5 MG
     Route: 065
     Dates: start: 20210923, end: 20210927
  61. ZOLPIDEM TARTRATE [Concomitant]
     Active Substance: ZOLPIDEM TARTRATE
     Indication: Depression
     Dosage: UNK
     Route: 048
     Dates: start: 20191119, end: 20191211
  62. ELDECALCITOL [Concomitant]
     Active Substance: ELDECALCITOL
     Indication: Product used for unknown indication
     Dosage: 0.75 UG
     Route: 048
     Dates: start: 2014
  63. DENOSUMAB [Concomitant]
     Active Substance: DENOSUMAB
     Indication: Product used for unknown indication
     Dosage: 60 MG
     Route: 065
     Dates: start: 20191210
  64. HUMIRA [Concomitant]
     Active Substance: ADALIMUMAB
     Indication: Adverse event
     Dosage: 160 MG
     Route: 065
     Dates: start: 20211029, end: 20211029
  65. HUMIRA [Concomitant]
     Active Substance: ADALIMUMAB
     Indication: Still^s disease
     Dosage: 80 MG
     Route: 065
     Dates: start: 20211112
  66. HUMIRA [Concomitant]
     Active Substance: ADALIMUMAB
     Dosage: 80 MG
     Route: 058
     Dates: start: 20211217

REACTIONS (19)
  - Febrile neutropenia [Recovered/Resolved]
  - Still^s disease [Recovered/Resolved]
  - Disease recurrence [Recovered/Resolved]
  - Haemophagocytic lymphohistiocytosis [Recovered/Resolved]
  - Osteonecrosis [Unknown]
  - Lymphocyte count decreased [Unknown]
  - Hypertension [Recovering/Resolving]
  - Aspartate aminotransferase increased [Recovered/Resolved]
  - Hypertriglyceridaemia [Recovered/Resolved]
  - Subcutaneous abscess [Recovering/Resolving]
  - Methaemoglobinaemia [Recovered/Resolved]
  - Hyperuricaemia [Recovered/Resolved]
  - Concomitant disease aggravated [Recovered/Resolved]
  - Pustule [Recovering/Resolving]
  - Hepatic function abnormal [Recovered/Resolved]
  - Inappropriate schedule of product administration [Unknown]
  - Product use in unapproved indication [Unknown]
  - White blood cell count decreased [Unknown]
  - Blood cholesterol increased [Unknown]

NARRATIVE: CASE EVENT DATE: 20191123
